FAERS Safety Report 8423935-1 (Version None)
Quarter: 2012Q2

REPORT INFORMATION
  Report Type: 
  Country: None (occurrence: None)
  Receive Date: 20120608
  Receipt Date: 20120224
  Transmission Date: 20120825
  Serious: Yes (Other)
  Sender: FDA-Public Use
  Company Number: US-ASTRAZENECA-2012SE12934

PATIENT

DRUGS (3)
  1. ATACAND [Suspect]
     Route: 048
  2. ATACAND [Suspect]
     Dosage: HALF TABLET
     Route: 048
  3. STEROIDS [Concomitant]

REACTIONS (3)
  - RENAL FAILURE [None]
  - DIABETES MELLITUS [None]
  - DRUG PRESCRIBING ERROR [None]
